FAERS Safety Report 5123366-6 (Version None)
Quarter: 2006Q4

REPORT INFORMATION
  Report Type: 
  Country: None (occurrence: None)
  Receive Date: 20061005
  Receipt Date: 20060925
  Transmission Date: 20070319
  Serious: Yes (Other)
  Sender: FDA-Public Use
  Company Number: 2006114944

PATIENT
  Sex: Male

DRUGS (1)
  1. LISTERINE COOL CITRUS (MENTHOL, METHYL SALICYLATE, EUCALYPTOL, THYMOL) [Suspect]
     Dosage: MORE THAN 1 BOTTLE DAILY, ORAL
     Route: 048
     Dates: start: 20060901, end: 20060924

REACTIONS (5)
  - ALCOHOL POISONING [None]
  - BLISTER [None]
  - INCORRECT DOSE ADMINISTERED [None]
  - INTENTIONAL DRUG MISUSE [None]
  - PARAESTHESIA [None]
